FAERS Safety Report 19640579 (Version 1)
Quarter: 2021Q3

REPORT INFORMATION
  Report Type: Spontaneous
  Country: JP (occurrence: JP)
  Receive Date: 20210730
  Receipt Date: 20210730
  Transmission Date: 20211014
  Serious: Yes (Other)
  Sender: FDA-Public Use
  Company Number: JP-SYNEX-T202103335

PATIENT
  Sex: Female
  Weight: 1 kg

DRUGS (1)
  1. INOFLO [Suspect]
     Active Substance: NITRIC OXIDE
     Indication: PULMONARY HYPERTENSION
     Dosage: UNK (INHALATION)
     Route: 055

REACTIONS (9)
  - Endocarditis staphylococcal [Recovered/Resolved]
  - Product use issue [Recovered/Resolved]
  - Neonatal hypoxia [Unknown]
  - Procalcitonin increased [Unknown]
  - Hyperlactacidaemia [Unknown]
  - C-reactive protein increased [Unknown]
  - Therapy non-responder [Unknown]
  - Neonatal tachycardia [Unknown]
  - Hyperglycaemia [Unknown]
